FAERS Safety Report 9619775 (Version 2)
Quarter: 2013Q4

REPORT INFORMATION
  Report Type: Spontaneous
  Country: FR (occurrence: FR)
  Receive Date: 20131014
  Receipt Date: 20131105
  Transmission Date: 20140711
  Serious: Yes (Hospitalization)
  Sender: FDA-Public Use
  Company Number: FR-GLAXOSMITHKLINE-B0927985A

PATIENT
  Age: 34 Year
  Sex: Male

DRUGS (1)
  1. LAMICTAL [Suspect]
     Indication: BIPOLAR DISORDER
     Route: 048
     Dates: start: 20130919, end: 20130929

REACTIONS (9)
  - Erythema [Recovering/Resolving]
  - Pruritus generalised [Recovering/Resolving]
  - Cholestasis [Recovering/Resolving]
  - Cell death [Recovering/Resolving]
  - Conjunctivitis [Recovering/Resolving]
  - Headache [Recovering/Resolving]
  - Vision blurred [Recovering/Resolving]
  - Ocular discomfort [Recovering/Resolving]
  - Pyrexia [Recovering/Resolving]
